FAERS Safety Report 7988266-2 (Version None)
Quarter: 2011Q4

REPORT INFORMATION
  Report Type: 
  Country: None (occurrence: None)
  Receive Date: 20111216
  Receipt Date: 20110429
  Transmission Date: 20120403
  Serious: No
  Sender: FDA-Public Use
  Company Number: US-ABBOTT-11P-163-0804520-00

PATIENT
  Sex: Female

DRUGS (4)
  1. PROGESTERONE [Suspect]
     Indication: PRODUCT USED FOR UNKNOWN INDICATION
     Dosage: DAILY DOSE: 100 MILLIGRAM(S)
     Route: 048
     Dates: start: 20101101
  2. PROGESTERONE [Suspect]
     Dosage: DAILY DOSE: 200 MILLIGRAM(S)
     Route: 048
  3. PROGESTERONE [Suspect]
     Dosage: DAILY DOSE: 100 MILLIGRAM(S)
     Route: 048
  4. PROGESTERONE [Suspect]
     Dosage: DAILY DOSE:  UNKNOWN
     Route: 067

REACTIONS (1)
  - HEADACHE [None]
